FAERS Safety Report 23010447 (Version 2)
Quarter: 2024Q3

REPORT INFORMATION
  Report Type: Spontaneous
  Country: US (occurrence: US)
  Receive Date: 20230929
  Receipt Date: 20240927
  Transmission Date: 20241016
  Serious: No
  Sender: RECKITT BENCKISER
  Company Number: US-Indivior Limited-INDV-139462-2023

PATIENT
  Age: 60 Year
  Sex: Male

DRUGS (3)
  1. PERSERIS [Suspect]
     Active Substance: RISPERIDONE
     Indication: Schizoaffective disorder
     Dosage: 120 MILLIGRAM, QMO
     Route: 065
     Dates: start: 20210317
  2. PERSERIS [Suspect]
     Active Substance: RISPERIDONE
     Dosage: 120 MILLIGRAM, QMO
     Route: 065
     Dates: start: 20230427
  3. PERSERIS [Suspect]
     Active Substance: RISPERIDONE
     Indication: Schizoaffective disorder
     Dosage: 90 MILLIGRAM, QMO
     Route: 065
     Dates: start: 20190618

REACTIONS (2)
  - Off label use [Not Recovered/Not Resolved]
  - Injection site abscess [Recovered/Resolved]

NARRATIVE: CASE EVENT DATE: 20190618
